FAERS Safety Report 4577172-1 (Version None)
Quarter: 2005Q1

REPORT INFORMATION
  Report Type: 
  Country: None (occurrence: None)
  Receive Date: 20050208
  Receipt Date: 20050201
  Transmission Date: 20050727
  Serious: Yes (Other)
  Sender: FDA-Public Use
  Company Number: HQWYE089314AUG03

PATIENT
  Age: 66 Year
  Sex: Female
  Weight: 65.83 kg

DRUGS (14)
  1. PREMPRO [Suspect]
     Indication: HORMONE REPLACEMENT THERAPY
     Dosage: ORAL
     Route: 048
     Dates: start: 19960101, end: 20011201
  2. PREMPRO [Suspect]
     Indication: MENOPAUSAL SYMPTOMS
     Dosage: ORAL
     Route: 048
     Dates: start: 19960101, end: 20011201
  3. ENALAPRIL MALEATE [Concomitant]
  4. HYDROCHLOROTHIAZIDE [Concomitant]
  5. DICLOFENAC SODIUM [Concomitant]
  6. ATENOLOL [Concomitant]
  7. LIPITOR [Concomitant]
  8. FOSAMAX [Concomitant]
  9. ASTELIN [Concomitant]
  10. ATROVENT [Concomitant]
  11. FOLIC ACID [Concomitant]
  12. ASPIRIN [Concomitant]
  13. VITAMIN C (ASCORBIC ACID) [Concomitant]
  14. POTASSIUM (POTASSIUM) [Concomitant]

REACTIONS (4)
  - BREAST CANCER METASTATIC [None]
  - INJURY [None]
  - OESTROGEN RECEPTOR ASSAY POSITIVE [None]
  - PROGESTERONE RECEPTOR ASSAY POSITIVE [None]
